FAERS Safety Report 7296391-7 (Version None)
Quarter: 2011Q1

REPORT INFORMATION
  Report Type: 
  Country: None (occurrence: None)
  Receive Date: 20110211
  Receipt Date: 20110211
  Transmission Date: 20110831
  Serious: Yes (Hospitalization)
  Sender: FDA-Public Use
  Company Number: None

PATIENT
  Age: 60 Year
  Sex: Female
  Weight: 52.1637 kg

DRUGS (2)
  1. SULFASALAZINE [Suspect]
     Indication: ARTHRITIS
     Dosage: 2 BY MOUTH 2 X DAY
     Dates: start: 20101027, end: 20101212
  2. HYDROXYCHLOROQUINE 200MG [Suspect]
     Indication: ARTHRITIS
     Dosage: 1 DAILY
     Dates: start: 20101214, end: 20110102

REACTIONS (6)
  - DYSURIA [None]
  - BLISTER [None]
  - SKIN EXFOLIATION [None]
  - OEDEMA PERIPHERAL [None]
  - RASH ERYTHEMATOUS [None]
  - DEHYDRATION [None]
